FAERS Safety Report 11078426 (Version 1)
Quarter: 2015Q2

REPORT INFORMATION
  Report Type: Spontaneous
  Country: FR (occurrence: FR)
  Receive Date: 20150430
  Receipt Date: 20150430
  Transmission Date: 20150821
  Serious: Yes (Death)
  Sender: FDA-Public Use
  Company Number: FR-SA-2015SA053727

PATIENT
  Age: 92 Year
  Sex: Male

DRUGS (6)
  1. LASILIX [Concomitant]
     Active Substance: FUROSEMIDE
     Dosage: STRENGTH: 40 MG; FORM: COMPRIME SECABLE
  2. LANZOR [Concomitant]
     Active Substance: LANSOPRAZOLE
     Dosage: STRENGTH:15 MG, GASTRORESISTANT MICROGRANULES IN CAPSULE
  3. CRESTOR [Concomitant]
     Active Substance: ROSUVASTATIN CALCIUM
     Dosage: STRENGTH: 5 MG
  4. HYPERIUM [Concomitant]
     Active Substance: RILMENIDINE PHOSPHATE
     Dosage: STRENGTH: 1 MG
  5. PLAVIX [Suspect]
     Active Substance: CLOPIDOGREL BISULFATE
     Indication: THROMBOANGIITIS OBLITERANS
     Route: 048
     Dates: start: 201410
  6. MONO TILDIEM LP [Concomitant]
     Active Substance: DILTIAZEM HYDROCHLORIDE
     Dosage: STRENGTH: 200 MG; FORM:PROLONGED RELEASE CAPSULE

REACTIONS (3)
  - Subdural haematoma [Fatal]
  - Hemiplegia [Fatal]
  - Status epilepticus [Fatal]

NARRATIVE: CASE EVENT DATE: 20150129
